FAERS Safety Report 15440989 (Version 2)
Quarter: 2018Q4

REPORT INFORMATION
  Report Type: Spontaneous
  Country: JP (occurrence: JP)
  Receive Date: 20180928
  Receipt Date: 20181017
  Transmission Date: 20190204
  Serious: Yes (Death)
  Sender: FDA-Public Use
  Company Number: JP-JNJFOC-20180934512

PATIENT
  Age: 80 Year
  Sex: Female
  Weight: 33 kg

DRUGS (14)
  1. FOLIAMIN [Concomitant]
     Active Substance: FOLIC ACID
     Dosage: AFTER BREAKFAST, EVERY THURSDAY
     Route: 048
     Dates: start: 20180808, end: 20180901
  2. BENET [Concomitant]
     Active Substance: RISEDRONATE SODIUM
     Dosage: UPON AWAKENING
     Route: 048
     Dates: start: 20180808, end: 20180901
  3. LOXOPROFEN [Concomitant]
     Active Substance: LOXOPROFEN
     Route: 062
     Dates: start: 20180808, end: 20180901
  4. METHOTREXATE. [Suspect]
     Active Substance: METHOTREXATE
     Indication: RHEUMATOID ARTHRITIS
     Route: 048
  5. SIMPONI [Suspect]
     Active Substance: GOLIMUMAB
     Indication: RHEUMATOID ARTHRITIS
     Route: 058
     Dates: start: 20180612, end: 20180808
  6. LANSOPRAZOLE. [Concomitant]
     Active Substance: LANSOPRAZOLE
     Dosage: AFTER BREAKFAST
     Route: 048
     Dates: start: 20180808, end: 20180901
  7. PREDNISOLONE. [Suspect]
     Active Substance: PREDNISOLONE
     Indication: PRODUCT USED FOR UNKNOWN INDICATION
     Dosage: IN THE MORNING 2 MG, IN THE EVENING 1 MG
     Route: 048
     Dates: start: 20180808, end: 20180901
  8. CELECOX [Concomitant]
     Active Substance: CELECOXIB
     Dosage: AFTER BREAKFAST, AFTER DINNER
     Route: 048
     Dates: start: 20180808, end: 20180901
  9. REBAMIPIDE [Concomitant]
     Active Substance: REBAMIPIDE
     Dosage: AFTER BREAKFAST, AFTER DINNER
     Route: 048
     Dates: start: 20180808, end: 20180901
  10. BAKTAR [Concomitant]
     Active Substance: SULFAMETHOXAZOLE\TRIMETHOPRIM
     Dosage: AFTER BREAKFAST, 3 TIMES A WEEK (FRIDAY-SUNDAY)
     Route: 048
     Dates: start: 20180808, end: 20180901
  11. METHOTREXATE. [Suspect]
     Active Substance: METHOTREXATE
     Indication: RHEUMATOID ARTHRITIS
     Dosage: AFTER BREAKFAST, AFTER DINNER EVERY TUESDAY
     Route: 048
     Dates: start: 20180808, end: 20180901
  12. LIXIANA [Concomitant]
     Active Substance: EDOXABAN TOSYLATE
     Dosage: AFTER BREAKFAST
     Route: 048
     Dates: start: 20180808, end: 20180901
  13. AMLODIPINE BESILATE [Concomitant]
     Active Substance: AMLODIPINE BESYLATE
     Dosage: AFTER BREAKFAST
     Route: 048
     Dates: start: 20180808, end: 20180901
  14. FRANDOL [Concomitant]
     Active Substance: ISOSORBIDE DINITRATE
     Route: 062
     Dates: start: 20180808, end: 20180901

REACTIONS (1)
  - Drowning [Fatal]

NARRATIVE: CASE EVENT DATE: 20180901
